FAERS Safety Report 6286781-3 (Version None)
Quarter: 2009Q3

REPORT INFORMATION
  Report Type: 
  Country: None (occurrence: None)
  Receive Date: 20090728
  Receipt Date: 20090716
  Transmission Date: 20100115
  Serious: Yes (Hospitalization, Other)
  Sender: FDA-Public Use
  Company Number: BR-PFIZER INC-2008160772

PATIENT
  Age: 58 Year

DRUGS (10)
  1. MARAVIROC [Suspect]
     Indication: HIV INFECTION
     Dosage: 150 MG, 2X/DAY
     Route: 048
     Dates: start: 20070904, end: 20081223
  2. TENOFOVIR [Concomitant]
     Dosage: UNK
     Route: 048
     Dates: start: 20070904
  3. LAMIVUDINE [Concomitant]
     Dosage: UNK
     Route: 048
     Dates: start: 20070904
  4. RITONAVIR [Concomitant]
     Dosage: UNK
     Route: 048
     Dates: start: 20070904
  5. ATAZANAVIR [Concomitant]
     Dosage: UNK
     Route: 048
     Dates: start: 20070904
  6. STAVUDINE [Concomitant]
     Dosage: UNK
     Route: 048
     Dates: start: 20070904
  7. PAROXETINE [Concomitant]
     Dosage: UNK
     Route: 048
     Dates: start: 20030101
  8. OMEPRAZOLE [Concomitant]
     Dosage: UNK
     Route: 048
     Dates: start: 20010101
  9. SULFASALAZINE [Concomitant]
     Dosage: UNK
     Route: 048
     Dates: start: 20040101
  10. SYMBICORT [Concomitant]
     Dosage: UNK
     Dates: start: 20010101

REACTIONS (1)
  - OPTIC NEURITIS [None]
